FAERS Safety Report 8771455 (Version 1)
Quarter: 2012Q4

REPORT INFORMATION
  Report Type: 
  Country: US (occurrence: US)
  Receive Date: 20120905
  Receipt Date: 20120905
  Transmission Date: 20130627
  Serious: No
  Sender: FDA-Public Use
  Company Number: US-B.I. PHARMACEUTICALS,INC./RIDGEFIELD-2012-BP-21268BP

PATIENT
  Age: 54 Year
  Sex: Female

DRUGS (5)
  1. SPIRIVA [Suspect]
     Dosage: 18 mcg
     Route: 055
     Dates: start: 20120330
  2. SPIRIVA [Suspect]
     Route: 048
     Dates: start: 20120830, end: 20120830
  3. ONDANSETRON [Concomitant]
     Indication: NAUSEA
     Route: 048
     Dates: start: 20110304
  4. PRILOSEC [Concomitant]
     Indication: GASTRIC PH DECREASED
     Dosage: 40 mg
     Route: 048
     Dates: start: 20100513
  5. NORCO [Concomitant]
     Indication: PAIN
     Route: 048
     Dates: start: 20110802

REACTIONS (3)
  - Hypertension [Not Recovered/Not Resolved]
  - Incorrect route of drug administration [Recovered/Resolved]
  - Oedema peripheral [Unknown]
